FAERS Safety Report 14353300 (Version 2)
Quarter: 2018Q1

REPORT INFORMATION
  Report Type: Spontaneous
  Country: FR (occurrence: FR)
  Receive Date: 20180105
  Receipt Date: 20180115
  Transmission Date: 20180509
  Serious: Yes (Other)
  Sender: FDA-Public Use
  Company Number: FR-AMGEN-FRASP2018001163

PATIENT
  Age: 68 Year
  Sex: Female

DRUGS (2)
  1. CALCIUM+VITAMIN D3 [Concomitant]
     Active Substance: CALCIUM\CHOLECALCIFEROL
     Dosage: UNK
  2. PROLIA [Suspect]
     Active Substance: DENOSUMAB
     Indication: OSTEOPOROSIS POSTMENOPAUSAL
     Dosage: 60 MG, UNK
     Route: 065
     Dates: start: 2015

REACTIONS (3)
  - Pain in jaw [Unknown]
  - Tooth fracture [Unknown]
  - Renal failure [Unknown]

NARRATIVE: CASE EVENT DATE: 2017
